FAERS Safety Report 5162414-4 (Version None)
Quarter: 2006Q4

REPORT INFORMATION
  Report Type: 
  Country: None (occurrence: None)
  Receive Date: 20061128
  Receipt Date: 20061128
  Transmission Date: 20070319
  Serious: Yes (Other)
  Sender: FDA-Public Use
  Company Number: None

PATIENT
  Age: 55 Year
  Sex: Female
  Weight: 104.3273 kg

DRUGS (6)
  1. SULFAMETHOXAZOLE AND TRIMETHOPRIM [Suspect]
     Indication: URINARY TRACT INFECTION
     Dosage: 800 MG /160 MG
     Dates: start: 20061023
  2. LISINOPRIL [Concomitant]
  3. WELLBUTRIN [Concomitant]
  4. HORMONE REPLACEMENT [Concomitant]
  5. METFORMIN HCL [Concomitant]
  6. PROGESTERONE [Concomitant]

REACTIONS (8)
  - ERYTHEMA [None]
  - FLUSHING [None]
  - MALAISE [None]
  - PAIN [None]
  - PRURITUS [None]
  - RASH [None]
  - RASH ERYTHEMATOUS [None]
  - SWELLING [None]
